FAERS Safety Report 21251453 (Version 2)
Quarter: 2022Q3

REPORT INFORMATION
  Report Type: Spontaneous
  Country: US (occurrence: US)
  Receive Date: 20220825
  Receipt Date: 20220922
  Transmission Date: 20221027
  Serious: No
  Sender: FDA-Public Use
  Company Number: US-NOVARTISTESTPH-NVSC2022US189170

PATIENT
  Age: 56 Year
  Sex: Female

DRUGS (2)
  1. COMBIPATCH [Suspect]
     Active Substance: ESTRADIOL\NORETHINDRONE ACETATE
     Indication: Menopausal symptoms
     Dosage: 0.05/0.14 MG, 1 PATCH EVERY 3-4 DAYS, (START DATE: APPROXIMATELY 1-2 YEARS)
     Route: 062
  2. COMBIPATCH [Suspect]
     Active Substance: ESTRADIOL\NORETHINDRONE ACETATE
     Dosage: 0.05/0.14 MG, 1 PATCH EVERY 3-4 DAYS
     Route: 062
     Dates: start: 20220817

REACTIONS (4)
  - Product residue present [Recovered/Resolved]
  - Skin erosion [Recovered/Resolved]
  - Product packaging issue [Recovered/Resolved]
  - Therapeutic product ineffective [Recovered/Resolved]
